FAERS Safety Report 9630932 (Version 1)
Quarter: 2013Q4

REPORT INFORMATION
  Report Type: Spontaneous
  Country: US (occurrence: None)
  Receive Date: 20131015
  Receipt Date: 20131015
  Transmission Date: 20140711
  Serious: Yes (Hospitalization, Other)
  Sender: FDA-Public Use
  Company Number: 2012-003760

PATIENT
  Age: 74 Year
  Sex: Male
  Weight: 98 kg

DRUGS (5)
  1. ACTONEL [Suspect]
     Route: 048
     Dates: start: 200904, end: 201101
  2. ACTONEL [Suspect]
     Route: 048
     Dates: start: 200607, end: 200904
  3. FOSAMAX (ALENDRONATE SODIUM) [Suspect]
     Route: 048
     Dates: start: 200505, end: 200607
  4. ALENDRONATE (ALENDRONATE SODIUM) [Suspect]
     Route: 048
     Dates: start: 20110128, end: 201104
  5. HYDROCHLOROTHIAZIDE [Concomitant]

REACTIONS (7)
  - Femur fracture [None]
  - Fracture displacement [None]
  - Pathological fracture [None]
  - Device failure [None]
  - Oedema peripheral [None]
  - Fracture nonunion [None]
  - Pain in extremity [None]
